FAERS Safety Report 18740492 (Version 3)
Quarter: 2021Q1

REPORT INFORMATION
  Report Type: Spontaneous
  Country: JP (occurrence: JP)
  Receive Date: 20210114
  Receipt Date: 20210319
  Transmission Date: 20210419
  Serious: Yes (Death)
  Sender: FDA-Public Use
  Company Number: JP-PFIZER INC-2021022610

PATIENT
  Age: 77 Year
  Sex: Male
  Weight: 33.4 kg

DRUGS (7)
  1. LASIX [Concomitant]
     Active Substance: FUROSEMIDE
     Dosage: 20 MG, 1X/DAY
     Route: 048
  2. METLIGINE [Concomitant]
     Active Substance: MIDODRINE HYDROCHLORIDE
     Dosage: 2 MG, 2X/DAY
     Route: 048
     Dates: start: 20140115, end: 20210110
  3. VYNDAQEL [Suspect]
     Active Substance: TAFAMIDIS MEGLUMINE
     Indication: HEREDITARY NEUROPATHIC AMYLOIDOSIS
     Dosage: 20 MG, 1X/DAY
     Route: 048
     Dates: start: 20140115
  4. VITAMEDIN [BENFOTIAMINE;CYANOCOBALAMIN;PYRIDOXINE HYDROCHLORIDE] [Concomitant]
     Indication: VITAMIN SUPPLEMENTATION
     Dosage: UNK, 3X/DAY
     Route: 048
     Dates: start: 20140115, end: 20210110
  5. DOPS [Concomitant]
     Active Substance: DROXIDOPA
     Dosage: 100 MG, 3X/DAY
     Route: 048
     Dates: start: 20140115, end: 20210110
  6. ASPARA POTASSIUM [Concomitant]
     Active Substance: POTASSIUM ASPARTATE
     Dosage: 100 MG, 3X/DAY
     Route: 048
     Dates: start: 20140115, end: 20210110
  7. AMEZINIUM METILSULFATE [Concomitant]
     Active Substance: AMEZINIUM METILSULFATE
     Dosage: 10 MG, 2X/DAY
     Route: 048
     Dates: start: 20140115, end: 20210110

REACTIONS (1)
  - Cardiac failure [Fatal]

NARRATIVE: CASE EVENT DATE: 20210110
